FAERS Safety Report 13896796 (Version 2)
Quarter: 2017Q4

REPORT INFORMATION
  Report Type: Report from Study
  Country: None (occurrence: US)
  Receive Date: 20170823
  Receipt Date: 20171113
  Transmission Date: 20180320
  Serious: Yes (Other)
  Sender: FDA-Public Use
  Company Number: US-ABBVIE-17K-163-1974441-00

PATIENT
  Age: 41 Year
  Sex: Female

DRUGS (4)
  1. HUMIRA [Suspect]
     Active Substance: ADALIMUMAB
     Indication: COLITIS ULCERATIVE
     Dosage: DAY 1
     Route: 058
     Dates: start: 20170420, end: 20170420
  2. HUMIRA [Suspect]
     Active Substance: ADALIMUMAB
     Dosage: DAY 15
     Route: 058
     Dates: start: 20170504, end: 20170504
  3. HUMIRA [Suspect]
     Active Substance: ADALIMUMAB
     Dosage: DAY 2
     Route: 058
     Dates: start: 20170421, end: 20170421
  4. HUMIRA [Suspect]
     Active Substance: ADALIMUMAB
     Route: 058
     Dates: start: 20170518

REACTIONS (15)
  - Skin adhesion [Unknown]
  - Decreased appetite [Unknown]
  - Abdominal pain upper [Recovered/Resolved]
  - Depressed mood [Recovered/Resolved]
  - Rectal haemorrhage [Not Recovered/Not Resolved]
  - Basal cell carcinoma [Unknown]
  - Diarrhoea haemorrhagic [Not Recovered/Not Resolved]
  - Haematochezia [Recovering/Resolving]
  - Insomnia [Not Recovered/Not Resolved]
  - Contusion [Unknown]
  - Injection site swelling [Recovered/Resolved]
  - Nasopharyngitis [Recovering/Resolving]
  - Headache [Unknown]
  - Nasal congestion [Unknown]
  - Loss of personal independence in daily activities [Not Recovered/Not Resolved]

NARRATIVE: CASE EVENT DATE: 2017
